FAERS Safety Report 19389368 (Version 1)
Quarter: 2021Q2

REPORT INFORMATION
  Report Type: Spontaneous
  Country: US (occurrence: US)
  Receive Date: 20210607
  Receipt Date: 20210607
  Transmission Date: 20210717
  Serious: Yes (Death)
  Sender: FDA-Public Use
  Company Number: None

PATIENT
  Age: 85 Year
  Sex: Male
  Weight: 85 kg

DRUGS (1)
  1. PEMBROLIZUMAB. [Suspect]
     Active Substance: PEMBROLIZUMAB
     Dates: start: 20200520, end: 20201230

REACTIONS (7)
  - Vomiting [None]
  - Nausea [None]
  - Colitis [None]
  - Diarrhoea [None]
  - Haematemesis [None]
  - Mallory-Weiss syndrome [None]
  - Gastric ulcer [None]

NARRATIVE: CASE EVENT DATE: 20210311
